FAERS Safety Report 4292437-9 (Version None)
Quarter: 2004Q1

REPORT INFORMATION
  Report Type: 
  Country: None (occurrence: None)
  Receive Date: 20040126
  Receipt Date: 20031020
  Transmission Date: 20041129
  Serious: No
  Sender: FDA-Public Use
  Company Number: USA031050294

PATIENT
  Age: 75 Year
  Sex: Female

DRUGS (4)
  1. FORTEO [Suspect]
     Indication: OSTEOPOROSIS
     Dates: start: 20030307
  2. SYNTHROID [Concomitant]
  3. CALCIUM WITH VITAMIN D [Concomitant]
  4. CIPRO [Concomitant]
     Dates: start: 20031016

REACTIONS (2)
  - URINARY TRACT INFECTION [None]
  - WEIGHT DECREASED [None]
